FAERS Safety Report 4511571-9 (Version None)
Quarter: 2004Q4

REPORT INFORMATION
  Report Type: 
  Country: None (occurrence: None)
  Receive Date: 20041129
  Receipt Date: 20041001
  Transmission Date: 20050328
  Serious: No
  Sender: FDA-Public Use
  Company Number: US-BRISTOL-MYERS SQUIBB COMPANY-12719423

PATIENT
  Age: 44 Year
  Sex: Female
  Weight: 95 kg

DRUGS (3)
  1. ABILIFY [Suspect]
     Indication: BIPOLAR DISORDER
     Route: 048
     Dates: start: 20040601
  2. ZOLOFT [Concomitant]
  3. TRILEPTAL [Concomitant]

REACTIONS (1)
  - ANOREXIA [None]
